FAERS Safety Report 9972736 (Version 2)
Quarter: 2014Q2

REPORT INFORMATION
  Report Type: Spontaneous
  Country: US (occurrence: US)
  Receive Date: 20140306
  Receipt Date: 20140424
  Transmission Date: 20141212
  Serious: No
  Sender: FDA-Public Use
  Company Number: US-PFIZER INC-2014059872

PATIENT
  Age: 71 Year
  Sex: Female
  Weight: 72.6 kg

DRUGS (4)
  1. CELEBREX [Suspect]
     Indication: RHEUMATOID ARTHRITIS
     Dosage: 200 MG, 2X/DAY
     Route: 048
  2. METHOTREXATE [Concomitant]
     Indication: RHEUMATOID ARTHRITIS
     Dosage: 10 MG, WEEKLY
  3. HYDROCODONE/ACETAMINOPHEN [Concomitant]
     Indication: PAIN
     Dosage: 5/500 MG, AS NEEDED
  4. HYDROCODONE/ACETAMINOPHEN [Concomitant]
     Indication: BACK DISORDER

REACTIONS (1)
  - Therapeutic response changed [Unknown]
